FAERS Safety Report 7219706-4 (Version None)
Quarter: 2011Q1

REPORT INFORMATION
  Report Type: 
  Country: None (occurrence: None)
  Receive Date: 20110111
  Receipt Date: 20110106
  Transmission Date: 20110831
  Serious: Yes (Death, Disabling, Other)
  Sender: FDA-Public Use
  Company Number: PHHY2010US87354

PATIENT
  Sex: Female

DRUGS (1)
  1. EXJADE [Suspect]

REACTIONS (4)
  - METAMORPHOPSIA [None]
  - CARDIAC VALVE DISEASE [None]
  - BLINDNESS UNILATERAL [None]
  - NEOPLASM MALIGNANT [None]
